FAERS Safety Report 17176451 (Version 6)
Quarter: 2020Q1

REPORT INFORMATION
  Report Type: Spontaneous
  Country: CA (occurrence: CA)
  Receive Date: 20191219
  Receipt Date: 20200206
  Transmission Date: 20200409
  Serious: Yes (Other)
  Sender: FDA-Public Use
  Company Number: CA-ROCHE-2500252

PATIENT
  Age: 30 Year
  Sex: Female

DRUGS (1)
  1. XOLAIR [Suspect]
     Active Substance: OMALIZUMAB
     Indication: ASTHMA
     Route: 058
     Dates: start: 20120216

REACTIONS (10)
  - Injection site pain [Not Recovered/Not Resolved]
  - Weight increased [Unknown]
  - Drug ineffective [Unknown]
  - Needle issue [Unknown]
  - Injection site scar [Unknown]
  - Pulmonary function test decreased [Unknown]
  - Dyspnoea [Unknown]
  - Asthma [Unknown]
  - Injection site discomfort [Unknown]
  - Weaning failure [Unknown]
